FAERS Safety Report 5302622-2 (Version None)
Quarter: 2007Q2

REPORT INFORMATION
  Report Type: 
  Country: None (occurrence: None)
  Receive Date: 20070419
  Receipt Date: 20070410
  Transmission Date: 20071010
  Serious: Yes (Other)
  Sender: FDA-Public Use
  Company Number: GB-PFIZER INC-2007029040

PATIENT
  Age: 39 Year
  Sex: Female
  Weight: 60 kg

DRUGS (21)
  1. LYRICA [Suspect]
     Indication: PAIN
     Route: 048
     Dates: start: 20070309, end: 20070322
  2. AMITRIPTYLINE HYDROCHLORIDE [Concomitant]
     Dosage: FREQ:DAILY
  3. ASPIRIN [Concomitant]
  4. BUSCOPAN [Concomitant]
     Dosage: DAILY DOSE:20MG
  5. CITALOPRAM HYDROBROMIDE [Concomitant]
  6. CO-CODAMOL [Concomitant]
  7. DIAZEPAM [Concomitant]
     Dosage: FREQ:DAILY
  8. ETORICOXIB [Concomitant]
  9. GABAPENTIN [Concomitant]
  10. GLYCEROL 2.6% [Concomitant]
  11. LACTULOSE [Concomitant]
  12. LANSOPRAZOLE [Concomitant]
  13. LIDOCAINE [Concomitant]
     Route: 062
  14. OXYCODONE HCL [Concomitant]
  15. OXYCONTIN [Concomitant]
  16. OXYNORM [Concomitant]
     Dosage: DAILY DOSE:5MG
  17. PARACETAMOL [Concomitant]
     Dosage: DAILY DOSE:1000MG
  18. SALBUTAMOL [Concomitant]
     Route: 055
  19. SENNA [Concomitant]
  20. TRAMADOL HCL [Concomitant]
  21. ZOPICLONE [Concomitant]

REACTIONS (2)
  - DYSPHEMIA [None]
  - SPEECH DISORDER [None]
